FAERS Safety Report 16499443 (Version 1)
Quarter: 2019Q3

REPORT INFORMATION
  Report Type: Spontaneous
  Country: CA (occurrence: CA)
  Receive Date: 20190701
  Receipt Date: 20190701
  Transmission Date: 20191004
  Serious: Yes (Other)
  Sender: FDA-Public Use
  Company Number: CA-SA-2019SA174398

PATIENT

DRUGS (9)
  1. INFLIXIMAB [Interacting]
     Active Substance: INFLIXIMAB
     Indication: JUVENILE IDIOPATHIC ARTHRITIS
     Dosage: UNK
  2. METHOTREXATE. [Interacting]
     Active Substance: METHOTREXATE
     Indication: JUVENILE IDIOPATHIC ARTHRITIS
     Dosage: 1 DF, QW
     Route: 058
  3. NAPROXEN. [Interacting]
     Active Substance: NAPROXEN
     Dosage: UNK
  4. ETANERCEPT [Interacting]
     Active Substance: ETANERCEPT
     Indication: JUVENILE IDIOPATHIC ARTHRITIS
     Dosage: UNK
  5. FOLIC ACID. [Interacting]
     Active Substance: FOLIC ACID
     Dosage: UNK
  6. PREDNISONE. [Interacting]
     Active Substance: PREDNISONE
     Indication: JUVENILE IDIOPATHIC ARTHRITIS
     Dosage: UNK
  7. LEFLUNOMIDE. [Suspect]
     Active Substance: LEFLUNOMIDE
     Indication: JUVENILE IDIOPATHIC ARTHRITIS
     Dosage: 20 MG, QD
     Route: 048
  8. ADALIMUMAB [Interacting]
     Active Substance: ADALIMUMAB
     Indication: JUVENILE IDIOPATHIC ARTHRITIS
  9. SULFASALAZINE. [Interacting]
     Active Substance: SULFASALAZINE
     Indication: JUVENILE IDIOPATHIC ARTHRITIS
     Dosage: 1 DF, QW
     Route: 058

REACTIONS (7)
  - Polyarthritis [Recovered/Resolved]
  - Alopecia [Recovered/Resolved]
  - Therapeutic product effect incomplete [Recovered/Resolved]
  - Drug interaction [Recovered/Resolved]
  - Gastric disorder [Recovered/Resolved]
  - Drug ineffective [Recovered/Resolved]
  - Sacroiliitis [Recovered/Resolved]
